FAERS Safety Report 6266975-3 (Version None)
Quarter: 2009Q3

REPORT INFORMATION
  Report Type: 
  Country: None (occurrence: None)
  Receive Date: 20090714
  Receipt Date: 20090710
  Transmission Date: 20100115
  Serious: Yes (Other)
  Sender: FDA-Public Use
  Company Number: JP-B.I. PHARMACEUTICALS,INC./RIDGEFIELD-2009-BP-02744NB

PATIENT
  Sex: Male
  Weight: 59 kg

DRUGS (4)
  1. MICARDIS [Suspect]
     Indication: HYPERTENSION
     Dosage: 40 MG
     Route: 048
     Dates: start: 20050509, end: 20090107
  2. LIPITOR [Suspect]
     Indication: DYSLIPIDAEMIA
     Dosage: 5 MG
     Route: 048
     Dates: start: 20070619, end: 20090107
  3. AMLODIPINE [Suspect]
     Indication: HYPERTENSION
     Dosage: 2.5 MG
     Route: 048
     Dates: start: 20050524, end: 20090107
  4. MAGNESIUM OXIDE [Concomitant]
     Route: 048
     Dates: start: 20070509, end: 20080925

REACTIONS (3)
  - AMNESIA [None]
  - ASTHENIA [None]
  - FEELING ABNORMAL [None]
